FAERS Safety Report 9727712 (Version 3)
Quarter: 2013Q4

REPORT INFORMATION
  Report Type: Spontaneous
  Country: US (occurrence: US)
  Receive Date: 20131203
  Receipt Date: 20131206
  Transmission Date: 20140711
  Serious: No
  Sender: FDA-Public Use
  Company Number: US-GILEAD-2013-0086656

PATIENT
  Sex: Female

DRUGS (4)
  1. LETAIRIS [Suspect]
     Indication: PRODUCT USED FOR UNKNOWN INDICATION
     Dosage: 5 MG, QD
     Dates: start: 20131010
  2. LETAIRIS [Suspect]
     Dates: start: 20131009
  3. ADCIRCA [Concomitant]
  4. COUMADIN                           /00014802/ [Concomitant]

REACTIONS (2)
  - Oedema [Unknown]
  - Local swelling [Unknown]
